FAERS Safety Report 5039506-3 (Version None)
Quarter: 2006Q2

REPORT INFORMATION
  Report Type: 
  Country: None (occurrence: None)
  Receive Date: 20060601
  Receipt Date: 20060117
  Transmission Date: 20061013
  Serious: No
  Sender: FDA-Public Use
  Company Number: 2006PV007217

PATIENT
  Age: 71 Year
  Sex: Male
  Weight: 79.3795 kg

DRUGS (10)
  1. BYETTA [Suspect]
     Indication: DIABETES MELLITUS NON-INSULIN-DEPENDENT
     Dosage: SEE IMAGE
     Route: 058
     Dates: start: 20051231, end: 20060403
  2. BYETTA [Suspect]
     Indication: DIABETES MELLITUS NON-INSULIN-DEPENDENT
     Dosage: SEE IMAGE
     Route: 058
     Dates: start: 20060404
  3. BYETTA [Suspect]
  4. BYETTA [Suspect]
  5. GLUCOPHAGE [Concomitant]
  6. GLUCOTROL XL [Concomitant]
  7. GLUCOTROL [Concomitant]
  8. NORVASC [Concomitant]
  9. CRESTOR [Concomitant]
  10. LAMISIL [Concomitant]

REACTIONS (8)
  - BLOOD GLUCOSE DECREASED [None]
  - DIZZINESS [None]
  - FAECES HARD [None]
  - FAT REDISTRIBUTION [None]
  - LETHARGY [None]
  - MALAISE [None]
  - NAUSEA [None]
  - WEIGHT DECREASED [None]
